FAERS Safety Report 20590601 (Version 1)
Quarter: 2022Q1

REPORT INFORMATION
  Report Type: Spontaneous
  Country: CN (occurrence: CN)
  Receive Date: 20220314
  Receipt Date: 20220314
  Transmission Date: 20220423
  Serious: Yes (Other)
  Sender: FDA-Public Use
  Company Number: CN-BAYER-2022A037367

PATIENT
  Age: 66 Year
  Sex: Female
  Weight: 55 kg

DRUGS (3)
  1. GLUCOBAY [Suspect]
     Active Substance: ACARBOSE
     Indication: Type 2 diabetes mellitus
     Dosage: 50 MG, TID
     Route: 048
     Dates: start: 20211229, end: 20220129
  2. EPALRESTAT [Concomitant]
     Active Substance: EPALRESTAT
     Indication: Cardiovascular disorder
     Dosage: 50 MG, TID
     Route: 048
     Dates: start: 20211229, end: 20220129
  3. NIFEDIPINE [Concomitant]
     Active Substance: NIFEDIPINE
     Indication: Essential hypertension
     Dosage: 30 MG, QD
     Route: 048
     Dates: start: 20211229, end: 20220129

REACTIONS (5)
  - Intestinal ulcer [Recovering/Resolving]
  - Intestinal mass [Recovering/Resolving]
  - Functional gastrointestinal disorder [Recovering/Resolving]
  - Bowel movement irregularity [Recovering/Resolving]
  - Abdominal pain [Recovering/Resolving]

NARRATIVE: CASE EVENT DATE: 20220101
